FAERS Safety Report 18156351 (Version 1)
Quarter: 2020Q3

REPORT INFORMATION
  Report Type: Spontaneous
  Country: US (occurrence: US)
  Receive Date: 20200815
  Receipt Date: 20200815
  Transmission Date: 20201103
  Serious: Yes (Other)
  Sender: FDA-Public Use
  Company Number: None

PATIENT
  Age: 66 Year
  Sex: Female
  Weight: 75.6 kg

DRUGS (15)
  1. MULTIPLE VITAMINS [Concomitant]
     Active Substance: VITAMINS
  2. NIACIN. [Concomitant]
     Active Substance: NIACIN
  3. BIOTIN [Concomitant]
     Active Substance: BIOTIN
  4. VITIMAN E [Concomitant]
  5. CLOFAZIMINE. [Concomitant]
     Active Substance: CLOFAZIMINE
  6. COLLAGEN [Concomitant]
     Active Substance: COLLAGEN
  7. POTASSIUM [Concomitant]
     Active Substance: POTASSIUM
  8. MAGNESIUM [Concomitant]
     Active Substance: MAGNESIUM
  9. SEROQUEL [Concomitant]
     Active Substance: QUETIAPINE FUMARATE
  10. GEODON [Concomitant]
     Active Substance: ZIPRASIDONE HYDROCHLORIDE\ZIPRASIDONE MESYLATE
  11. OMEGA 3 [Concomitant]
     Active Substance: OMEGA-3 FATTY ACIDS
  12. MIRTAZAPINE. [Suspect]
     Active Substance: MIRTAZAPINE
     Indication: INSOMNIA
     Dosage: ?          QUANTITY:1 TABLET(S);?
     Route: 048
     Dates: start: 20200810, end: 20200815
  13. SUPER K 2 [Concomitant]
  14. ATIVAN [Concomitant]
     Active Substance: LORAZEPAM
  15. LAMICTAL [Concomitant]
     Active Substance: LAMOTRIGINE

REACTIONS (1)
  - Vision blurred [None]

NARRATIVE: CASE EVENT DATE: 20200815
